FAERS Safety Report 9540776 (Version 2)
Quarter: 2013Q3

REPORT INFORMATION
  Report Type: Report from Study
  Country: US (occurrence: US)
  Receive Date: 20130920
  Receipt Date: 20130920
  Transmission Date: 20140515
  Serious: Yes (Death, Hospitalization, Other)
  Sender: FDA-Public Use
  Company Number: US-ABBVIE-13P-163-1102530-00

PATIENT
  Sex: Male

DRUGS (24)
  1. HUMIRA [Suspect]
     Indication: RHEUMATOID ARTHRITIS
     Route: 058
     Dates: start: 20121228, end: 201305
  2. ACETAMINOPHECODEINE [Concomitant]
     Indication: PAIN
     Dosage: 300-30 1Q6HR PRN
  3. ACETAMINOPHECODEINE [Concomitant]
     Indication: COUGH
  4. ALBUTEROL SULFATE HFA [Concomitant]
     Indication: PRODUCT USED FOR UNKNOWN INDICATION
     Dosage: 108 (90 BASE)  2 PUFFS Q6H PRN
  5. ALBUTEROL PRATROPIUM [Concomitant]
     Indication: PRODUCT USED FOR UNKNOWN INDICATION
     Dosage: AS DIRECTED PRN
  6. LEFLUNOMIDE [Concomitant]
     Indication: PRODUCT USED FOR UNKNOWN INDICATION
     Route: 048
  7. LORAZEPAM [Concomitant]
     Indication: INSOMNIA
     Dosage: 1 TAB AT BEDTIME PRN
     Route: 048
  8. NEXIUM [Concomitant]
     Indication: PRODUCT USED FOR UNKNOWN INDICATION
     Dosage: DELAYED RELEASE CAPSULE
     Route: 048
  9. OXYGEN [Concomitant]
     Indication: PRODUCT USED FOR UNKNOWN INDICATION
     Dosage: CONTINUOUS
  10. PLAQUENIL [Concomitant]
     Indication: PRODUCT USED FOR UNKNOWN INDICATION
     Dosage: TAKE 2 TABS WITH MILK OR FOOD DAILY
     Route: 048
  11. SULFASALAZINE [Concomitant]
     Indication: PRODUCT USED FOR UNKNOWN INDICATION
     Route: 048
  12. SYMBICORT [Concomitant]
     Indication: PRODUCT USED FOR UNKNOWN INDICATION
     Dosage: 160 MCG-4.5 MCG/INH AEROSOL WITH ADAPTER
     Route: 055
  13. PREDNISONE [Concomitant]
     Indication: PRODUCT USED FOR UNKNOWN INDICATION
     Route: 048
  14. PREDNISONE [Concomitant]
     Route: 048
  15. DUONEB [Concomitant]
     Indication: PRODUCT USED FOR UNKNOWN INDICATION
     Dosage: 0.5 MG- 2.5 MG/3 ML
     Route: 055
  16. FINASTERIDE [Concomitant]
     Indication: PRODUCT USED FOR UNKNOWN INDICATION
     Route: 048
  17. FLOMAX [Concomitant]
     Indication: PRODUCT USED FOR UNKNOWN INDICATION
     Dosage: 1 CAP 30 MINUTES AFTER EACH MEAL
     Route: 048
  18. GABAPENTIN [Concomitant]
     Indication: PRODUCT USED FOR UNKNOWN INDICATION
     Dosage: 1 CAP AM AND 2 CAP ON
     Route: 048
  19. MAGESTROL [Concomitant]
     Indication: PRODUCT USED FOR UNKNOWN INDICATION
     Route: 048
  20. OPTIFOAM NON-ADHESIVE [Concomitant]
     Indication: PRODUCT USED FOR UNKNOWN INDICATION
     Dosage: 1 BABDAGE Q3D
  21. OXYCODONE [Concomitant]
     Indication: PRODUCT USED FOR UNKNOWN INDICATION
     Dosage: AT BEDTIME
     Route: 048
  22. TYLENOL EXTRA STRENGTH [Concomitant]
     Indication: PRODUCT USED FOR UNKNOWN INDICATION
     Dosage: 1 TAB Q6H PRN
     Route: 048
  23. XENADERM [Concomitant]
     Indication: PRODUCT USED FOR UNKNOWN INDICATION
     Dosage: AS DIRECTED BID
     Route: 061
  24. ZITHROMAX [Concomitant]
     Indication: PRODUCT USED FOR UNKNOWN INDICATION
     Route: 048

REACTIONS (19)
  - Glioblastoma multiforme [Fatal]
  - Chronic obstructive pulmonary disease [Fatal]
  - Pneumonia [Fatal]
  - Dyspnoea [Unknown]
  - Hypoxia [Unknown]
  - Muscular weakness [Unknown]
  - Myocardial ischaemia [Unknown]
  - Finger deformity [Unknown]
  - Decubitus ulcer [Unknown]
  - Pneumonia [Fatal]
  - Chronic obstructive pulmonary disease [Fatal]
  - Pulmonary fibrosis [Fatal]
  - Rheumatoid arthritis [Fatal]
  - Neurogenic bladder [Unknown]
  - Staphylococcal infection [Unknown]
  - Rales [Unknown]
  - Oedema peripheral [Unknown]
  - Joint range of motion decreased [Unknown]
  - Anaemia [Unknown]
